FAERS Safety Report 8406846 (Version 2)
Quarter: 2013Q1

REPORT INFORMATION
  Report Type: Spontaneous
  Country: US (occurrence: US)
  Receive Date: 20120215
  Receipt Date: 20130301
  Transmission Date: 20140127
  Serious: Yes (Hospitalization, Other)
  Sender: FDA-Public Use
  Company Number: US-ROCHE-1039916

PATIENT
  Age: 38 None
  Sex: Female
  Weight: 47.67 kg

DRUGS (1)
  1. ACCUTANE [Suspect]
     Indication: ACNE
     Route: 065
     Dates: start: 199501, end: 1996

REACTIONS (7)
  - Colitis ulcerative [Unknown]
  - Inflammatory bowel disease [Unknown]
  - Injury [Unknown]
  - Depression [Unknown]
  - Intestinal haemorrhage [Unknown]
  - Polyp [Unknown]
  - Irritable bowel syndrome [Unknown]
